FAERS Safety Report 7108160-9 (Version None)
Quarter: 2010Q4

REPORT INFORMATION
  Report Type: 
  Country: None (occurrence: None)
  Receive Date: 20101115
  Receipt Date: 20101115
  Transmission Date: 20110411
  Serious: No
  Sender: FDA-Public Use
  Company Number: None

PATIENT
  Age: 79 Year
  Sex: Female
  Weight: 68.4932 kg

DRUGS (1)
  1. SIMCOR [Suspect]
     Indication: BLOOD CHOLESTEROL
     Dosage: 1000 - 20 MG 2 DAILY TAB
     Dates: start: 20090601, end: 20100901

REACTIONS (3)
  - MEDIAL TIBIAL STRESS SYNDROME [None]
  - MUSCLE SPASMS [None]
  - MUSCULAR WEAKNESS [None]
